FAERS Safety Report 26182743 (Version 1)
Quarter: 2025Q4

REPORT INFORMATION
  Report Type: Spontaneous
  Country: AU (occurrence: AU)
  Receive Date: 20251221
  Receipt Date: 20251221
  Transmission Date: 20260117
  Serious: Yes (Other)
  Sender: SANOFI AVENTIS
  Company Number: AU-DialogSolutions-SAAVPROD-PI855045-C1

PATIENT
  Age: 16 Year
  Sex: Male

DRUGS (2)
  1. DUPILUMAB [Suspect]
     Active Substance: DUPILUMAB
     Indication: Eczema
     Dosage: UNK
  2. UPADACITINIB [Concomitant]
     Active Substance: UPADACITINIB
     Indication: Eczema
     Dosage: UNK

REACTIONS (3)
  - Nephrotic syndrome [Unknown]
  - Oedema peripheral [Unknown]
  - Proteinuria [Unknown]
